FAERS Safety Report 5750274-X (Version None)
Quarter: 2008Q2

REPORT INFORMATION
  Report Type: 
  Country: None (occurrence: None)
  Receive Date: 20080520
  Receipt Date: 20080520
  Transmission Date: 20081010
  Serious: Yes (Hospitalization)
  Sender: FDA-Public Use
  Company Number: None

PATIENT
  Sex: Male
  Weight: 83.0083 kg

DRUGS (15)
  1. ERLOTINIB 150 MG - GENENTECH [Suspect]
     Indication: METASTATIC RENAL CELL CARCINOMA
     Dosage: 150 MG, QD, PO
     Route: 048
     Dates: start: 20080306, end: 20080320
  2. RAPAMUNE [Suspect]
     Indication: METASTATIC RENAL CELL CARCINOMA
     Dosage: 3 MG, QD, PO
     Route: 048
     Dates: start: 20080313, end: 20080425
  3. FOSAMAX [Concomitant]
  4. BENZACLIN [Concomitant]
  5. VITAMIN B-12 [Concomitant]
  6. DICLOMYME [Concomitant]
  7. LOMOTIL [Concomitant]
  8. DOXAZOS [Concomitant]
  9. FINASTERIDE [Concomitant]
  10. LASIX [Concomitant]
  11. INSULIN [Concomitant]
  12. SYNTHROID [Concomitant]
  13. ZESTRIL [Concomitant]
  14. ALAVERT [Concomitant]
  15. METAMUCIL [Concomitant]

REACTIONS (2)
  - DEHYDRATION [None]
  - DIARRHOEA [None]
